FAERS Safety Report 5211597-6 (Version None)
Quarter: 2007Q1

REPORT INFORMATION
  Report Type: 
  Country: None (occurrence: None)
  Receive Date: 20070118
  Receipt Date: 20070108
  Transmission Date: 20070707
  Serious: Yes (Hospitalization)
  Sender: FDA-Public Use
  Company Number: DE-JNJFOC-20070101806

PATIENT
  Age: 42 Year
  Sex: Female
  Weight: 51 kg

DRUGS (2)
  1. BLINDED; INFLIXIMAB, RECOMBINANT [Suspect]
     Indication: ANKYLOSING SPONDYLITIS
     Route: 042
  2. PLACEBO [Suspect]
     Indication: ANKYLOSING SPONDYLITIS
     Route: 042

REACTIONS (1)
  - CERVIX CARCINOMA [None]
